FAERS Safety Report 23869963 (Version 1)
Quarter: 2024Q2

REPORT INFORMATION
  Report Type: Spontaneous
  Country: US (occurrence: US)
  Receive Date: 20240517
  Receipt Date: 20240517
  Transmission Date: 20240716
  Serious: No
  Sender: FDA-Public Use
  Company Number: US-SA-SAC20240509000770

PATIENT
  Sex: Female
  Weight: 70.3 kg

DRUGS (1)
  1. DUPIXENT [Suspect]
     Active Substance: DUPILUMAB
     Indication: Dermatitis atopic
     Dosage: UNK UNK, QOW
     Route: 058

REACTIONS (6)
  - Lip swelling [Unknown]
  - Cough [Unknown]
  - Dyspepsia [Unknown]
  - Mouth swelling [Unknown]
  - Eye swelling [Unknown]
  - Injection site erythema [Recovering/Resolving]
